FAERS Safety Report 10993869 (Version 1)
Quarter: 2015Q2

REPORT INFORMATION
  Report Type: Spontaneous
  Country: GB (occurrence: None)
  Receive Date: 20150403
  Receipt Date: 20150403
  Transmission Date: 20150821
  Serious: Yes (Other)
  Sender: FDA-Public Use
  Company Number: NL01PV15_38742

PATIENT
  Age: 95 Year
  Sex: Male
  Weight: 86 kg

DRUGS (5)
  1. UNKNOWN (TAMSULOSIN) UNKNOWN [Suspect]
     Active Substance: TAMSULOSIN
     Indication: BENIGN PROSTATIC HYPERPLASIA
     Route: 048
     Dates: start: 20140827, end: 20150114
  2. UNKNOWN (BISOPROLOL) UNKNOWN [Concomitant]
  3. LEVOTHYROXINE [Concomitant]
     Active Substance: LEVOTHYROXINE
  4. WARFARIN [Concomitant]
     Active Substance: WARFARIN
  5. MIRTAZAPINE. [Concomitant]
     Active Substance: MIRTAZAPINE

REACTIONS (1)
  - Hyperkalaemia [None]

NARRATIVE: CASE EVENT DATE: 20150109
